FAERS Safety Report 21486203 (Version 1)
Quarter: 2022Q4

REPORT INFORMATION
  Report Type: Spontaneous
  Country: US (occurrence: US)
  Receive Date: 20221020
  Receipt Date: 20221020
  Transmission Date: 20230113
  Serious: Yes (Other)
  Sender: FDA-Public Use
  Company Number: US-FreseniusKabi-FK202214117

PATIENT
  Age: 64 Year
  Sex: Male

DRUGS (4)
  1. FLUOROURACIL [Suspect]
     Active Substance: FLUOROURACIL
     Indication: Rectal cancer stage III
     Dosage: FOLFOX
     Route: 040
  2. FLUOROURACIL [Suspect]
     Active Substance: FLUOROURACIL
     Dosage: FOLFOX?INFUSION 2400MG/M2 OVER 46 H EVERY 14 DAYS
     Route: 040
  3. LEUCOVORIN [Suspect]
     Active Substance: LEUCOVORIN
     Indication: Rectal cancer stage III
     Dosage: FOLFOX
  4. OXALIPLATIN [Suspect]
     Active Substance: OXALIPLATIN
     Indication: Rectal cancer stage III
     Dosage: FOLFOX

REACTIONS (2)
  - Encephalopathy [Recovered/Resolved]
  - Fatigue [Recovered/Resolved]
